FAERS Safety Report 8514560-2 (Version None)
Quarter: 2012Q3

REPORT INFORMATION
  Report Type: 
  Country: None (occurrence: None)
  Receive Date: 20120717
  Receipt Date: 20120711
  Transmission Date: 20120928
  Serious: Yes (Hospitalization, Other)
  Sender: FDA-Public Use
  Company Number: DE-ABBOTT-12P-062-0952180-00

PATIENT
  Age: 41 Year
  Sex: Male
  Weight: 84 kg

DRUGS (9)
  1. AMITRIPTYLINE HCL [Concomitant]
     Indication: PRODUCT USED FOR UNKNOWN INDICATION
     Dosage: DAILY DOSE 10 MG
     Dates: start: 20111102
  2. CITALOPRAM HYDROBROMIDE [Concomitant]
     Indication: PRODUCT USED FOR UNKNOWN INDICATION
     Dates: start: 20110913
  3. TRAMADOL HYDROCHLORIDE [Concomitant]
     Indication: PRODUCT USED FOR UNKNOWN INDICATION
     Dosage: ON DEMAND
     Dates: start: 20110630
  4. KALETRA [Suspect]
     Indication: HIV INFECTION
     Dosage: FOUR PER DAY
     Dates: start: 20060404
  5. ISENTRESS [Concomitant]
     Indication: PRODUCT USED FOR UNKNOWN INDICATION
     Dates: start: 20091223
  6. PEGASYS [Concomitant]
     Indication: PRODUCT USED FOR UNKNOWN INDICATION
     Dates: start: 20110603, end: 20110630
  7. COPEGUS [Concomitant]
     Indication: PRODUCT USED FOR UNKNOWN INDICATION
     Dosage: DAILY DOSE 1200 MG
     Dates: start: 20110603, end: 20110630
  8. AMITRIPTYLINE HCL [Concomitant]
     Dosage: DAILY DOSE 25 MG
     Dates: start: 20111121
  9. METAMIZOL [Concomitant]
     Indication: PRODUCT USED FOR UNKNOWN INDICATION
     Dosage: ON DEMAND
     Route: 050
     Dates: start: 20111121

REACTIONS (3)
  - LARGE INTESTINE PERFORATION [None]
  - ABDOMINAL PAIN LOWER [None]
  - COLON INJURY [None]
